FAERS Safety Report 16499546 (Version 2)
Quarter: 2019Q3

REPORT INFORMATION
  Report Type: Spontaneous
  Country: US (occurrence: US)
  Receive Date: 20190701
  Receipt Date: 20190703
  Transmission Date: 20191004
  Serious: No
  Sender: FDA-Public Use
  Company Number: US-ELI_LILLY_AND_COMPANY-US201906007620

PATIENT
  Sex: Female

DRUGS (2)
  1. HUMALOG [Suspect]
     Active Substance: INSULIN LISPRO
     Indication: PRODUCT USED FOR UNKNOWN INDICATION
     Dosage: UNK, UNKNOWN
     Route: 065
  2. HUMALOG [Suspect]
     Active Substance: INSULIN LISPRO
     Dosage: UNK, UNKNOWN
     Route: 065

REACTIONS (7)
  - Abdominal pain upper [Recovering/Resolving]
  - Tinnitus [Recovering/Resolving]
  - Heart rate increased [Recovering/Resolving]
  - Limb discomfort [Recovering/Resolving]
  - Feeling abnormal [Recovering/Resolving]
  - Blood glucose increased [Recovering/Resolving]
  - Drug ineffective [Recovering/Resolving]
